FAERS Safety Report 12821741 (Version 2)
Quarter: 2016Q4

REPORT INFORMATION
  Report Type: Report from Study
  Country: US (occurrence: US)
  Receive Date: 20161007
  Receipt Date: 20161206
  Transmission Date: 20170207
  Serious: Yes (Hospitalization, Other)
  Sender: FDA-Public Use
  Company Number: US-ROCHE-1666042

PATIENT
  Age: 58 Year
  Sex: Female
  Weight: 52.6 kg

DRUGS (5)
  1. BEVACIZUMAB [Suspect]
     Active Substance: BEVACIZUMAB
     Indication: OVARIAN EPITHELIAL CANCER
     Dosage: CYCLE 2 TO 22, OVER 30-90 MINS. ON DAY 1, MOST RECENT DOSE PRIOR TO SAE RECEIVED ON 06/AUG/2015
     Route: 042
  2. CISPLATIN. [Suspect]
     Active Substance: CISPLATIN
     Indication: OVARIAN EPITHELIAL CANCER
     Dosage: CYCLE 1- 6 ON DAY 1 OR 2, MOST RECENT DOSE PRIOR TO SAE RECEIVED ON 06/AUG/2015
     Route: 033
     Dates: start: 20150618
  3. VELIPARIB [Suspect]
     Active Substance: VELIPARIB
     Indication: OVARIAN EPITHELIAL CANCER
     Dosage: CYCLE 1 TO 6, ON DAYS 2-5, MOST RECENT DOSE PRIOR TO SAE RECEIVED ON 27/AUG/2015?TOTAL DOSE: 2000 MG
     Route: 048
     Dates: start: 20150618
  4. PACLITAXEL. [Suspect]
     Active Substance: PACLITAXEL
     Dosage: CYCLE 1 -6 ON DAY 8
     Route: 033
  5. PACLITAXEL. [Suspect]
     Active Substance: PACLITAXEL
     Indication: OVARIAN EPITHELIAL CANCER
     Dosage: ON DAY 1, CYCLE 1 TO 6, MOST RECENT DOSE PRIOR TO SAE RECEIVED ON 27/AUG/2015?TOTAL DOSE: 207.9 MG (
     Route: 042
     Dates: start: 20150618

REACTIONS (7)
  - Hyponatraemia [Unknown]
  - Seizure [Unknown]
  - Seizure [Recovered/Resolved]
  - Neutrophil count decreased [Unknown]
  - Hypertension [Unknown]
  - White blood cell count decreased [Unknown]
  - Platelet count decreased [Unknown]

NARRATIVE: CASE EVENT DATE: 20150827
